FAERS Safety Report 6395342-7 (Version None)
Quarter: 2009Q4

REPORT INFORMATION
  Report Type: 
  Country: None (occurrence: None)
  Receive Date: 20091009
  Receipt Date: 20091006
  Transmission Date: 20100525
  Serious: Yes (Other)
  Sender: FDA-Public Use
  Company Number: B0597087A

PATIENT
  Sex: Female

DRUGS (3)
  1. WELLBUTRIN [Suspect]
     Indication: ANTIDEPRESSANT THERAPY
     Route: 065
  2. LAMICTIN [Suspect]
     Indication: EPILEPSY
     Route: 065
  3. SEROQUEL [Suspect]
     Indication: SCHIZOPHRENIA
     Route: 065

REACTIONS (2)
  - BLINDNESS [None]
  - VISUAL IMPAIRMENT [None]
